FAERS Safety Report 5159253-7 (Version None)
Quarter: 2006Q4

REPORT INFORMATION
  Report Type: 
  Country: None (occurrence: None)
  Receive Date: 20061120
  Receipt Date: 20060109
  Transmission Date: 20070319
  Serious: Yes (Death, Congenital Anomaly)
  Sender: FDA-Public Use
  Company Number: 108483ISR

PATIENT
  Sex: 0

DRUGS (1)
  1. COPAXONE [Suspect]
     Indication: MULTIPLE SCLEROSIS
     Dosage: 20 MG (20 MG, ONCE A DAY) TRANSPLACENTAL
     Route: 064
     Dates: start: 20030519

REACTIONS (5)
  - ABORTION INDUCED [None]
  - DRUG EXPOSURE DURING PREGNANCY [None]
  - PREGNANCY [None]
  - STILLBIRTH [None]
  - TRISOMY 13 [None]
